FAERS Safety Report 15114425 (Version 1)
Quarter: 2018Q3

REPORT INFORMATION
  Report Type: Report from Study
  Country: US (occurrence: US)
  Receive Date: 20180706
  Receipt Date: 20180706
  Transmission Date: 20181010
  Serious: No
  Sender: FDA-Public Use
  Company Number: US-IPSEN BIOPHARMACEUTICALS, INC.-2017-13319

PATIENT
  Age: 2 Year
  Sex: Male
  Weight: 13 kg

DRUGS (7)
  1. DIASTAT [Concomitant]
     Active Substance: DIAZEPAM
     Indication: SEIZURE
     Route: 054
     Dates: start: 20170124
  2. KEPPRA [Concomitant]
     Active Substance: LEVETIRACETAM
     Indication: SEIZURE
     Route: 048
     Dates: start: 20170201
  3. DYSPORT [Suspect]
     Active Substance: ABOBOTULINUMTOXINA
     Indication: MUSCLE SPASTICITY
     Dosage: 650 UNITS
     Route: 030
     Dates: start: 20170801, end: 20170801
  4. PHENOL/ALCOHOL [Concomitant]
     Indication: MUSCLE SPASTICITY
     Route: 030
     Dates: start: 20170801, end: 20170801
  5. PHENOL/ALCOHOL [Concomitant]
     Route: 030
     Dates: start: 20180102, end: 20180102
  6. DYSPORT [Suspect]
     Active Substance: ABOBOTULINUMTOXINA
     Indication: MUSCLE SPASTICITY
     Dosage: 150 UNITS
     Route: 030
     Dates: start: 20180102, end: 20180102
  7. BACLOFEN. [Concomitant]
     Active Substance: BACLOFEN
     Indication: MUSCLE SPASTICITY
     Route: 048
     Dates: start: 20161129

REACTIONS (2)
  - Diarrhoea [Recovered/Resolved]
  - Off label use [Unknown]

NARRATIVE: CASE EVENT DATE: 20171210
